FAERS Safety Report 8452359-6 (Version None)
Quarter: 2012Q2

REPORT INFORMATION
  Report Type: 
  Country: None (occurrence: None)
  Receive Date: 20120620
  Receipt Date: 20120406
  Transmission Date: 20120825
  Serious: No
  Sender: FDA-Public Use
  Company Number: US-VERTEX PHARMACEUTICALS INC.-AE-2012-005024

PATIENT
  Sex: Female
  Weight: 123.49 kg

DRUGS (12)
  1. PEGASYS [Concomitant]
     Indication: HEPATITIS C
     Route: 058
     Dates: start: 20120316
  2. DURAGESIC SKIN PATCH [Concomitant]
     Indication: PAIN
  3. XANAX [Concomitant]
     Indication: ANXIETY
     Route: 048
  4. ZANAFLEX [Concomitant]
     Indication: MUSCLE SPASMS
     Route: 048
  5. AMBIEN [Concomitant]
     Route: 048
  6. CLONAZEPAM [Concomitant]
     Indication: ANXIETY
     Route: 048
  7. CONTIN SKIN PATCH [Concomitant]
     Indication: PAIN
  8. RIBAVIRIN [Concomitant]
     Indication: HEPATITIS C
     Route: 048
     Dates: start: 20120316
  9. INCIVEK [Suspect]
     Indication: HEPATITIS C
     Route: 048
     Dates: start: 20120316
  10. BROMOCRIPTINE MESYLATE [Concomitant]
     Indication: AMENORRHOEA
     Route: 048
  11. BUPRENEX [Concomitant]
     Indication: PAIN
     Route: 048
  12. WELLBUTRIN SR [Concomitant]
     Indication: DEPRESSION
     Route: 048

REACTIONS (8)
  - INFLUENZA LIKE ILLNESS [None]
  - NAUSEA [None]
  - VISUAL ACUITY REDUCED [None]
  - CHILLS [None]
  - FATIGUE [None]
  - DRY MOUTH [None]
  - PYREXIA [None]
  - DYSGEUSIA [None]
